FAERS Safety Report 18542628 (Version 1)
Quarter: 2020Q4

REPORT INFORMATION
  Report Type: Spontaneous
  Country: US (occurrence: US)
  Receive Date: 20201124
  Receipt Date: 20201124
  Transmission Date: 20210114
  Serious: No
  Sender: FDA-Public Use
  Company Number: US-TAKEDA-2020TUS051940

PATIENT
  Sex: Male

DRUGS (1)
  1. ICLUSIG [Suspect]
     Active Substance: PONATINIB
     Indication: ACUTE LEUKAEMIA
     Dosage: 45 MILLIGRAM, QD
     Route: 065
     Dates: start: 20201119

REACTIONS (2)
  - No adverse event [Unknown]
  - Off label use [Unknown]
